FAERS Safety Report 25005110 (Version 1)
Quarter: 2025Q1

REPORT INFORMATION
  Report Type: Spontaneous
  Country: US (occurrence: None)
  Receive Date: 20250223
  Receipt Date: 20250223
  Transmission Date: 20250408
  Serious: No
  Sender: FDA-CTU
  Company Number: None

PATIENT
  Sex: Female
  Weight: 72 kg

DRUGS (1)
  1. SPRIX [Suspect]
     Active Substance: KETOROLAC TROMETHAMINE
     Indication: Pain
     Dosage: OTHER QUANTITY : 5 5 BOTTLES;?FREQUENCY : EVERY 6 HOURS;?
     Route: 055

REACTIONS (3)
  - Application site pain [None]
  - Nasal discomfort [None]
  - Pain [None]
